FAERS Safety Report 6261802-2 (Version None)
Quarter: 2009Q3

REPORT INFORMATION
  Report Type: 
  Country: None (occurrence: None)
  Receive Date: 20090702
  Receipt Date: 20090514
  Transmission Date: 20100115
  Serious: No
  Sender: FDA-Public Use
  Company Number: 1000006240

PATIENT

DRUGS (1)
  1. BYSTOLIC [Suspect]

REACTIONS (1)
  - CHEST PAIN [None]
